FAERS Safety Report 15572972 (Version 4)
Quarter: 2019Q1

REPORT INFORMATION
  Report Type: Spontaneous
  Country: US (occurrence: US)
  Receive Date: 20181031
  Receipt Date: 20190218
  Transmission Date: 20190417
  Serious: Yes (Other)
  Sender: FDA-Public Use
  Company Number: US-SA-2018SA296912

PATIENT
  Age: 55 Year
  Sex: Female
  Weight: 113.39 kg

DRUGS (25)
  1. INDOLE-3-CARBINOL [Concomitant]
     Active Substance: DIETARY SUPPLEMENT
  2. KRILL OIL [Concomitant]
     Active Substance: DIETARY SUPPLEMENT
     Dosage: 170 MG
  3. FIORICET [Concomitant]
     Active Substance: ACETAMINOPHEN\BUTALBITAL\CAFFEINE
     Dosage: 40 MG
  4. LEMTRADA [Suspect]
     Active Substance: ALEMTUZUMAB
     Dosage: UNK UNK, UNK
     Route: 041
     Dates: start: 200801, end: 200801
  5. LEMTRADA [Suspect]
     Active Substance: ALEMTUZUMAB
     Dosage: UNK UNK, UNK
     Route: 041
     Dates: start: 200901, end: 200901
  6. FIORICET [Concomitant]
     Active Substance: ACETAMINOPHEN\BUTALBITAL\CAFFEINE
     Dosage: 50 MG
  7. TURMERIC [CURCUMA LONGA] [Concomitant]
     Dosage: 400 MG
  8. KRILL OIL [Concomitant]
     Active Substance: DIETARY SUPPLEMENT
     Dosage: 1000 MG
  9. MELATONIN [Concomitant]
     Active Substance: MELATONIN
     Dosage: 5 MG
  10. ALPRAZOLAM. [Concomitant]
     Active Substance: ALPRAZOLAM
     Dosage: 0.5 MG
  11. BUPROPION HYDROCHLORIDE XL [Concomitant]
     Active Substance: BUPROPION HYDROCHLORIDE
     Dosage: 150 MG
  12. KRILL OIL [Concomitant]
     Active Substance: DIETARY SUPPLEMENT
     Dosage: 50 MG
  13. KRILL OIL [Concomitant]
     Active Substance: DIETARY SUPPLEMENT
     Dosage: 80 MG
  14. TRAZODONE [Suspect]
     Active Substance: TRAZODONE HYDROCHLORIDE
     Dosage: 150 MG
  15. VITAMIN D3 [Concomitant]
     Active Substance: CHOLECALCIFEROL
     Dosage: 5000 U
  16. LEMTRADA [Suspect]
     Active Substance: ALEMTUZUMAB
     Dosage: UNK UNK, UNK
     Route: 041
     Dates: start: 201404, end: 201404
  17. FLONASE [Concomitant]
     Active Substance: FLUTICASONE PROPIONATE
     Dosage: 50 UG
  18. NAPROXEN. [Concomitant]
     Active Substance: NAPROXEN
  19. LEMTRADA [Suspect]
     Active Substance: ALEMTUZUMAB
     Indication: MULTIPLE SCLEROSIS
     Dosage: UNK UNK, UNK
     Route: 041
     Dates: start: 200701, end: 200701
  20. CRANBERRY [VACCINIUM SPP.] [Concomitant]
     Dosage: 400 MG
  21. FIORICET [Concomitant]
     Active Substance: ACETAMINOPHEN\BUTALBITAL\CAFFEINE
     Dosage: 300  MG
  22. MODAFINIL. [Concomitant]
     Active Substance: MODAFINIL
     Dosage: 200 MG
  23. LEMTRADA [Suspect]
     Active Substance: ALEMTUZUMAB
     Dosage: UNK UNK, UNK
     Route: 041
     Dates: start: 201103, end: 201103
  24. ALLEGRA [Concomitant]
     Active Substance: FEXOFENADINE HYDROCHLORIDE
     Indication: HYPERSENSITIVITY
     Dosage: 180 MG
  25. AZELASTINE. [Concomitant]
     Active Substance: AZELASTINE HYDROCHLORIDE
     Dosage: 137 UG

REACTIONS (18)
  - Thrombocytopenia [Recovered/Resolved]
  - White blood cell count increased [Recovered/Resolved]
  - Mean platelet volume decreased [Recovered/Resolved]
  - Platelet count decreased [Recovered/Resolved]
  - Visual field defect [Unknown]
  - Insomnia [Unknown]
  - Contusion [Recovered/Resolved]
  - Leukocytosis [Unknown]
  - Granulocyte count increased [Not Recovered/Not Resolved]
  - Lymphocyte percentage decreased [Not Recovered/Not Resolved]
  - Monocyte percentage decreased [Recovered/Resolved]
  - Immune thrombocytopenic purpura [Recovered/Resolved]
  - Pollakiuria [Unknown]
  - Depression [Unknown]
  - Petechiae [Recovered/Resolved]
  - Red cell distribution width increased [Not Recovered/Not Resolved]
  - Mean cell haemoglobin concentration [Recovered/Resolved]
  - Granulocyte percentage [Not Recovered/Not Resolved]

NARRATIVE: CASE EVENT DATE: 20121031
